FAERS Safety Report 23957173 (Version 3)
Quarter: 2024Q3

REPORT INFORMATION
  Report Type: Spontaneous
  Country: CO (occurrence: CO)
  Receive Date: 20240610
  Receipt Date: 20240924
  Transmission Date: 20241017
  Serious: Yes (Hospitalization)
  Sender: REGENERON
  Company Number: CO-SA-SAC20240607000417

PATIENT
  Age: 64 Year
  Sex: Male

DRUGS (1)
  1. PRALUENT [Suspect]
     Active Substance: ALIROCUMAB
     Indication: Type IIa hyperlipidaemia
     Dosage: 75 MG, QOW
     Route: 058
     Dates: start: 2024

REACTIONS (7)
  - Limb injury [Unknown]
  - Clavicle fracture [Unknown]
  - Road traffic accident [Unknown]
  - Road traffic accident [Unknown]
  - Ankle fracture [Unknown]
  - Fibula fracture [Unknown]
  - Wound infection [Unknown]

NARRATIVE: CASE EVENT DATE: 20240417
